FAERS Safety Report 20734539 (Version 1)
Quarter: 2022Q2

REPORT INFORMATION
  Report Type: Spontaneous
  Country: US (occurrence: None)
  Receive Date: 20220420
  Receipt Date: 20220420
  Transmission Date: 20220721
  Serious: Yes (unspecified)
  Sender: FDA-Public Use
  Company Number: None

PATIENT
  Age: 90 Year
  Sex: Male
  Weight: 87.75 kg

DRUGS (7)
  1. GABAPENTIN [Suspect]
     Active Substance: GABAPENTIN
     Indication: Pain in extremity
     Dosage: OTHER QUANTITY : 1 CAPSULE(S);?FREQUENCY : AT BEDTIME;?
     Route: 048
  2. LIPITOR [Concomitant]
     Active Substance: ATORVASTATIN CALCIUM
  3. ELIQUIS [Concomitant]
     Active Substance: APIXABAN
  4. TRULICITY [Concomitant]
     Active Substance: DULAGLUTIDE
  5. TRESIBA [Concomitant]
     Active Substance: INSULIN DEGLUDEC
  6. AMLODIPINE [Concomitant]
     Active Substance: AMLODIPINE BESYLATE
  7. SENNA [Concomitant]
     Active Substance: SENNA LEAF\SENNOSIDES\SENNOSIDES A AND B

REACTIONS (1)
  - Blood pressure diastolic decreased [None]

NARRATIVE: CASE EVENT DATE: 20220324
